FAERS Safety Report 7824452-X (Version None)
Quarter: 2011Q4

REPORT INFORMATION
  Report Type: 
  Country: None (occurrence: None)
  Receive Date: 20111014
  Receipt Date: 20111005
  Transmission Date: 20120403
  Serious: Yes (Life-Threatening, Other)
  Sender: FDA-Public Use
  Company Number: 2011-01143

PATIENT
  Age: 10 Day
  Sex: Female
  Weight: 1.323 kg

DRUGS (6)
  1. CEFOTAXIME [Suspect]
     Indication: NECROTISING COLITIS
     Dosage: 76 MG (76 MG,  ), INTRACAVERNOUS
     Route: 017
     Dates: start: 20110913, end: 20110916
  2. AMOXICILLIN [Concomitant]
  3. CAFFEINE CITRATE [Concomitant]
  4. GENTAMICIN [Concomitant]
  5. METRONIDAZOLE [Concomitant]
  6. RANITIDINE [Concomitant]

REACTIONS (1)
  - HAEMOLYSIS [None]
